FAERS Safety Report 14351583 (Version 1)
Quarter: 2018Q1

REPORT INFORMATION
  Report Type: Spontaneous
  Country: FR (occurrence: FR)
  Receive Date: 20180104
  Receipt Date: 20180104
  Transmission Date: 20180509
  Serious: Yes (Hospitalization)
  Sender: FDA-Public Use
  Company Number: FR-SA-2017SA264315

PATIENT
  Age: 63 Year
  Sex: Male
  Weight: 70 kg

DRUGS (2)
  1. LOVENOX [Suspect]
     Active Substance: ENOXAPARIN SODIUM
     Indication: PULMONARY EMBOLISM
     Route: 058
     Dates: start: 20171207, end: 20171213
  2. BRUFEN [Concomitant]
     Active Substance: IBUPROFEN

REACTIONS (4)
  - Peritoneal haemorrhage [Recovered/Resolved with Sequelae]
  - Haemorrhagic anaemia [Recovered/Resolved]
  - Acute kidney injury [Recovering/Resolving]
  - Hepatic haematoma [Recovering/Resolving]

NARRATIVE: CASE EVENT DATE: 20171213
